FAERS Safety Report 5937592-7 (Version None)
Quarter: 2008Q4

REPORT INFORMATION
  Report Type: 
  Country: None (occurrence: None)
  Receive Date: 20081031
  Receipt Date: 20081024
  Transmission Date: 20090506
  Serious: Yes (Death)
  Sender: FDA-Public Use
  Company Number: JP-JNJFOC-20081006145

PATIENT
  Sex: Male
  Weight: 67 kg

DRUGS (55)
  1. LEUSTATIN [Suspect]
     Route: 040
  2. LEUSTATIN [Suspect]
     Route: 040
  3. LEUSTATIN [Suspect]
     Route: 040
  4. LEUSTATIN [Suspect]
     Route: 040
  5. LEUSTATIN [Suspect]
     Route: 040
  6. LEUSTATIN [Suspect]
     Indication: MANTLE CELL LYMPHOMA
     Route: 040
  7. RITUXAN [Suspect]
     Route: 041
  8. RITUXAN [Suspect]
     Route: 041
  9. RITUXAN [Suspect]
     Route: 041
  10. RITUXAN [Suspect]
     Route: 041
  11. RITUXAN [Suspect]
     Route: 041
  12. RITUXAN [Suspect]
     Indication: MANTLE CELL LYMPHOMA
     Route: 041
  13. NOVANTRONE [Suspect]
     Route: 041
  14. NOVANTRONE [Suspect]
     Route: 041
  15. NOVANTRONE [Suspect]
     Route: 041
  16. NOVANTRONE [Suspect]
     Route: 041
  17. NOVANTRONE [Suspect]
     Route: 041
  18. NOVANTRONE [Suspect]
     Indication: MANTLE CELL LYMPHOMA
     Route: 041
  19. GASTER D [Concomitant]
     Indication: PROPHYLAXIS AGAINST GASTROINTESTINAL ULCER
     Route: 048
  20. CELESTAMINE TAB [Concomitant]
     Route: 048
  21. CELESTAMINE TAB [Concomitant]
     Route: 048
  22. CELESTAMINE TAB [Concomitant]
     Route: 048
  23. CELESTAMINE TAB [Concomitant]
     Route: 048
  24. CELESTAMINE TAB [Concomitant]
     Route: 048
  25. CELESTAMINE TAB [Concomitant]
     Indication: PROPHYLAXIS
     Route: 048
  26. BRUFEN [Concomitant]
     Route: 048
  27. BRUFEN [Concomitant]
     Route: 048
  28. BRUFEN [Concomitant]
     Route: 048
  29. BRUFEN [Concomitant]
     Route: 048
  30. BRUFEN [Concomitant]
     Route: 048
  31. BRUFEN [Concomitant]
     Indication: PROPHYLAXIS
     Route: 048
  32. ITRACONAZOLE [Concomitant]
     Indication: INFECTION PROPHYLAXIS
     Route: 048
  33. SOLU-CORTEF [Concomitant]
     Route: 041
  34. SOLU-CORTEF [Concomitant]
     Route: 041
  35. SOLU-CORTEF [Concomitant]
     Route: 041
  36. SOLU-CORTEF [Concomitant]
     Route: 041
  37. SOLU-CORTEF [Concomitant]
     Route: 041
  38. SOLU-CORTEF [Concomitant]
     Indication: PROPHYLAXIS
     Route: 041
  39. COTRIM [Concomitant]
     Indication: ANTIFUNGAL PROPHYLAXIS
     Route: 048
  40. BIOFERMIN [Concomitant]
     Indication: PROPHYLAXIS
     Route: 048
  41. GASMOTIN [Concomitant]
     Indication: PROPHYLAXIS OF NAUSEA AND VOMITING
     Route: 048
  42. SEROTONE [Concomitant]
     Route: 041
  43. SEROTONE [Concomitant]
     Indication: PROPHYLAXIS OF NAUSEA AND VOMITING
     Route: 041
  44. NEUTROGIN [Concomitant]
     Route: 058
  45. NEUTROGIN [Concomitant]
     Route: 058
  46. NEUTROGIN [Concomitant]
     Route: 058
  47. NEUTROGIN [Concomitant]
     Route: 058
  48. NEUTROGIN [Concomitant]
     Route: 058
  49. NEUTROGIN [Concomitant]
     Route: 058
  50. NEUTROGIN [Concomitant]
     Route: 058
  51. KYTRIL [Concomitant]
     Route: 041
  52. KYTRIL [Concomitant]
     Route: 041
  53. KYTRIL [Concomitant]
     Route: 041
  54. KYTRIL [Concomitant]
     Indication: PROPHYLAXIS OF NAUSEA AND VOMITING
     Route: 041
  55. ZOVIRAX [Concomitant]
     Indication: INFECTION PROPHYLAXIS
     Route: 048

REACTIONS (3)
  - APLASTIC ANAEMIA [None]
  - IMMUNODEFICIENCY [None]
  - SEPSIS [None]
